FAERS Safety Report 18038455 (Version 2)
Quarter: 2020Q3

REPORT INFORMATION
  Report Type: Report from Study
  Country: FR (occurrence: FR)
  Receive Date: 20200717
  Receipt Date: 20200819
  Transmission Date: 20201103
  Serious: Yes (Hospitalization)
  Sender: FDA-Public Use
  Company Number: FR-VERTEX PHARMACEUTICALS-2020-014369

PATIENT
  Age: 26 Year
  Sex: Male
  Weight: 65 kg

DRUGS (19)
  1. SYMBICORT [Concomitant]
     Active Substance: BUDESONIDE\FORMOTEROL FUMARATE DIHYDRATE
     Dosage: 1 PUFF, BID
  2. CREON [Concomitant]
     Active Substance: PANCRELIPASE AMYLASE\PANCRELIPASE LIPASE\PANCRELIPASE PROTEASE
     Dosage: 12 TIMES/ DAY
  3. VITAMIN A [RETINOL] [Concomitant]
     Active Substance: RETINOL
     Dosage: 1 DOSAGE FORM/ WEEK
  4. UVEDOSE [Concomitant]
     Active Substance: CHOLECALCIFEROL
     Dosage: 1 VIAL/ MONTH
  5. CO AMOXYCLAV [AMOXICILLIN;CLAVULANIC ACID] [Concomitant]
     Dosage: 1 GRAM, TID
  6. VENTOLINE [SALBUTAMOL] [Concomitant]
     Active Substance: ALBUTEROL SULFATE
     Dosage: 2 PUFF
  7. PULMOZYME [Concomitant]
     Active Substance: DORNASE ALFA
     Indication: CYSTIC FIBROSIS
     Dosage: 1 DOSAGE FORM, BID
  8. ELEXACAFTOR/TEZACAFTOR/IVACAFTOR [Suspect]
     Active Substance: ELEXACAFTOR\IVACAFTOR\TEZACAFTOR
     Indication: CYSTIC FIBROSIS
     Dosage: 2 PILLS, AM
     Route: 048
     Dates: start: 20200409, end: 20200511
  9. KALYDECO [Suspect]
     Active Substance: IVACAFTOR
     Indication: CYSTIC FIBROSIS
     Dosage: 1 PILL, PM
     Route: 048
     Dates: start: 20200409, end: 20200511
  10. KALYDECO [Suspect]
     Active Substance: IVACAFTOR
     Dosage: DOSE ADJUSTED
     Route: 048
     Dates: start: 20200606, end: 20200628
  11. VITAMIN K1 [Concomitant]
     Active Substance: PHYTONADIONE
     Dosage: 1 VIAL/ WEEK
  12. AZITHROMYCIN ANHYDROUS. [Concomitant]
     Active Substance: AZITHROMYCIN ANHYDROUS
     Indication: CYSTIC FIBROSIS
     Dosage: 250 MILLIGRAM, 3 TIMES/ WEEK
  13. TOCO [Concomitant]
     Active Substance: .ALPHA.-TOCOPHEROL ACETATE, D-
     Dosage: 1 CAPSULE/ DAY
  14. ELEXACAFTOR/TEZACAFTOR/IVACAFTOR [Suspect]
     Active Substance: ELEXACAFTOR\IVACAFTOR\TEZACAFTOR
     Dosage: 2 TABS(100 MG ELEXACAFTOR/ 50 MG TEZACAFTOR/ 75 MG IVACAFTOR) IN AM
     Route: 048
     Dates: start: 20200629
  15. COLOBREATHE [Concomitant]
     Active Substance: COLISTIMETHATE SODIUM
     Dosage: 1 MONTH/ 2
  16. AUGMENTIN [Concomitant]
     Active Substance: AMOXICILLIN\CLAVULANATE POTASSIUM
     Dosage: 1 GRAM, TID
  17. ELEXACAFTOR/TEZACAFTOR/IVACAFTOR [Suspect]
     Active Substance: ELEXACAFTOR\IVACAFTOR\TEZACAFTOR
     Dosage: DOSE ADJUSTED
     Route: 048
     Dates: start: 20200606, end: 20200628
  18. TOBI PODHALER [Concomitant]
     Active Substance: TOBRAMYCIN
     Dosage: 4 GEL, TWICE, 1 MONTH/ 2
  19. MINOCYCLINE [Concomitant]
     Active Substance: MINOCYCLINE HYDROCHLORIDE
     Dosage: 1 DOSAGE FORM, BID

REACTIONS (1)
  - Hepatocellular injury [Recovered/Resolved]

NARRATIVE: CASE EVENT DATE: 20200510
